FAERS Safety Report 11110960 (Version 1)
Quarter: 2015Q2

REPORT INFORMATION
  Report Type: Spontaneous
  Country: GR (occurrence: GR)
  Receive Date: 20150513
  Receipt Date: 20150513
  Transmission Date: 20150821
  Serious: Yes (Other)
  Sender: FDA-Public Use
  Company Number: GR-APOTEX-2015AP008974

PATIENT
  Age: 58 Year
  Sex: Male

DRUGS (1)
  1. PAXIL [Suspect]
     Active Substance: PAROXETINE HYDROCHLORIDE
     Indication: PRODUCT USED FOR UNKNOWN INDICATION
     Dosage: 20 MG, DAILY
     Route: 065
     Dates: start: 201307, end: 201410

REACTIONS (2)
  - Mastitis [Not Recovered/Not Resolved]
  - Breast neoplasm [Unknown]

NARRATIVE: CASE EVENT DATE: 20150115
